FAERS Safety Report 5843956-2 (Version None)
Quarter: 2008Q3

REPORT INFORMATION
  Report Type: 
  Country: None (occurrence: None)
  Receive Date: 20080731
  Receipt Date: 20080327
  Transmission Date: 20090109
  Serious: No
  Sender: FDA-Public Use
  Company Number: US200804000187

PATIENT
  Age: 53 Year
  Sex: Male
  Weight: 120.2 kg

DRUGS (5)
  1. BYETTA [Suspect]
     Indication: TYPE 2 DIABETES MELLITUS
     Dosage: 5 UG, 2/D, SUBCUTANEOUS ; 10 UG, 2/D, SUBCUTANEOUS
     Route: 058
     Dates: start: 20071001, end: 20071101
  2. BYETTA [Suspect]
     Indication: TYPE 2 DIABETES MELLITUS
     Dosage: 5 UG, 2/D, SUBCUTANEOUS ; 10 UG, 2/D, SUBCUTANEOUS
     Route: 058
     Dates: start: 20071101, end: 20080327
  3. GLUCOPHAGE [Concomitant]
  4. CLARITIN /USA/ (LORATADINE) [Concomitant]
  5. EXENATIDE PEN, DISPOSABLE DEVICE (EXENATIDE PEN)) PEN, DISPOSABLE [Concomitant]

REACTIONS (4)
  - ASTHENIA [None]
  - DRUG INTERACTION [None]
  - HEADACHE [None]
  - NAUSEA [None]
